FAERS Safety Report 4265669-3 (Version None)
Quarter: 2004Q1

REPORT INFORMATION
  Report Type: 
  Country: None (occurrence: None)
  Receive Date: 20040107
  Receipt Date: 20021212
  Transmission Date: 20041129
  Serious: Yes (Life-Threatening)
  Sender: FDA-Public Use
  Company Number: BE-GLAXOSMITHKLINE-B0288022A

PATIENT
  Age: 70 Year
  Sex: Male
  Weight: 77 kg

DRUGS (3)
  1. ROSIGLITAZONE MALEATE [Suspect]
     Indication: DIABETES MELLITUS NON-INSULIN-DEPENDENT
     Dosage: 4MG PER DAY
     Route: 048
     Dates: start: 20020217, end: 20020904
  2. GLYBURIDE [Concomitant]
     Route: 048
  3. RYTMONORM [Concomitant]
     Indication: ATRIAL FIBRILLATION
     Dosage: 300MG TWICE PER DAY
     Dates: start: 20020101

REACTIONS (6)
  - ABDOMINAL PAIN [None]
  - ABDOMINAL PAIN UPPER [None]
  - CHANGE OF BOWEL HABIT [None]
  - HEPATOMEGALY [None]
  - METASTASIS [None]
  - MUSCLE SPASMS [None]
